FAERS Safety Report 7009801-7 (Version None)
Quarter: 2010Q3

REPORT INFORMATION
  Report Type: 
  Country: None (occurrence: None)
  Receive Date: 20100923
  Receipt Date: 20100915
  Transmission Date: 20110219
  Serious: Yes (Hospitalization, Other)
  Sender: FDA-Public Use
  Company Number: CH-AMGEN-QUU436291

PATIENT
  Age: 42 Year
  Sex: Female

DRUGS (7)
  1. ENBREL [Suspect]
     Indication: RHEUMATOID ARTHRITIS
     Dates: start: 20091009, end: 20100611
  2. ENBREL [Suspect]
     Dates: start: 20100801, end: 20100801
  3. ENBREL [Suspect]
     Dates: start: 20100904
  4. METHOTREXATE [Suspect]
     Indication: RHEUMATOID ARTHRITIS
     Dosage: DOSE AND FREQUENCY UNKNOWN
     Dates: start: 20090415, end: 20100611
  5. METHOTREXATE [Suspect]
     Dosage: DOSE AND FREQUENCY UNKNOWN
     Dates: start: 20100801, end: 20100801
  6. METHOTREXATE [Suspect]
     Dosage: DOSE AND FREQUENCY UNKNOWN
     Dates: start: 20100904
  7. PREDNISONE [Concomitant]
     Indication: RHEUMATOID ARTHRITIS
     Dosage: DOSE AND FREQUENCY UNKNOWN
     Dates: start: 20090320, end: 20091224

REACTIONS (5)
  - KIDNEY FIBROSIS [None]
  - PELVIC CONGESTION [None]
  - PYELONEPHRITIS [None]
  - VULVAR EROSION [None]
  - WHITE BLOOD CELL COUNT DECREASED [None]
